FAERS Safety Report 6638792-3 (Version None)
Quarter: 2010Q1

REPORT INFORMATION
  Report Type: 
  Country: None (occurrence: None)
  Receive Date: 20100317
  Receipt Date: 20100304
  Transmission Date: 20100710
  Serious: Yes (Other)
  Sender: FDA-Public Use
  Company Number: GB-PFIZER INC-2010027705

PATIENT
  Age: 40 Year
  Sex: Female
  Weight: 75 kg

DRUGS (5)
  1. CHAMPIX [Suspect]
     Indication: EX-TOBACCO USER
     Dosage: 0.5 MG, UNK
     Route: 048
     Dates: start: 20100129, end: 20100208
  2. AMITRIPTYLINE [Concomitant]
     Indication: DEPRESSION
     Dosage: 10 MG, UNK
     Route: 048
  3. DIAZEPAM [Concomitant]
     Indication: ANXIETY
     Dosage: 2 MG, UNK
     Route: 048
  4. OMEPRAZOLE [Concomitant]
     Dosage: 20 MG, UNK
     Route: 048
  5. PARACETAMOL [Concomitant]
     Indication: PAIN
     Dosage: 500 MG, AS NEEDED
     Route: 048

REACTIONS (2)
  - CRYING [None]
  - MOOD ALTERED [None]
